FAERS Safety Report 7241965-2 (Version None)
Quarter: 2011Q1

REPORT INFORMATION
  Report Type: 
  Country: None (occurrence: None)
  Receive Date: 20110124
  Receipt Date: 20110119
  Transmission Date: 20110831
  Serious: Yes (Life-Threatening)
  Sender: FDA-Public Use
  Company Number: US-ASTRAZENECA-2011SE03255

PATIENT
  Age: 50 Year
  Sex: Male

DRUGS (3)
  1. HYDROCHLOROTHIAZIDE [Suspect]
     Dosage: 625 MG
     Route: 048
  2. AMLODIPINE [Suspect]
     Dosage: 500 MG
     Route: 048
  3. LISINOPRIL [Suspect]
     Indication: HYPERTENSION
     Dosage: 1 GR
     Route: 048

REACTIONS (8)
  - MULTIPLE DRUG OVERDOSE INTENTIONAL [None]
  - SUICIDE ATTEMPT [None]
  - RESPIRATORY FAILURE [None]
  - CARDIAC OUTPUT DECREASED [None]
  - RENAL FAILURE ACUTE [None]
  - HYPOTENSION [None]
  - SEPSIS [None]
  - SHOCK [None]
